FAERS Safety Report 17563315 (Version 2)
Quarter: 2020Q2

REPORT INFORMATION
  Report Type: Report from Study
  Country: CA (occurrence: CA)
  Receive Date: 20200319
  Receipt Date: 20200526
  Transmission Date: 20200713
  Serious: Yes (Death, Hospitalization)
  Sender: FDA-Public Use
  Company Number: CA-EISAI MEDICAL RESEARCH-EC-2019-060918

PATIENT
  Age: 71 Year
  Sex: Male
  Weight: 90.9 kg

DRUGS (4)
  1. ATIVAN [Concomitant]
     Active Substance: LORAZEPAM
  2. LENVIMA [Suspect]
     Active Substance: LENVATINIB
     Indication: HEPATOCELLULAR CARCINOMA
     Route: 048
     Dates: start: 20190605, end: 2019
  3. LENVIMA [Suspect]
     Active Substance: LENVATINIB
     Dosage: DECREASED DOSE
     Route: 048
     Dates: start: 2019, end: 20190830
  4. REMERON [Concomitant]
     Active Substance: MIRTAZAPINE

REACTIONS (10)
  - Diarrhoea [Fatal]
  - Encephalopathy [Unknown]
  - General physical health deterioration [Fatal]
  - Asthenia [Unknown]
  - Malignant neoplasm progression [Fatal]
  - Insomnia [Unknown]
  - Agitation [Unknown]
  - Weight decreased [Fatal]
  - Oesophagitis ulcerative [Unknown]
  - Hypothyroidism [Recovered/Resolved]

NARRATIVE: CASE EVENT DATE: 2019
